FAERS Safety Report 7502337-6 (Version None)
Quarter: 2011Q2

REPORT INFORMATION
  Report Type: 
  Country: None (occurrence: None)
  Receive Date: 20110523
  Receipt Date: 20110523
  Transmission Date: 20111010
  Serious: No
  Sender: FDA-Public Use
  Company Number: None

PATIENT

DRUGS (2)
  1. WARFARIN SODIUM [Suspect]
     Indication: ATRIAL FIBRILLATION
     Dosage: 6MG DAILY PO
     Route: 048
     Dates: start: 20110506, end: 20110520
  2. WARFARIN SODIUM [Suspect]
     Indication: DEEP VEIN THROMBOSIS
     Dosage: 6-9 MG DAILY PO
     Route: 048
     Dates: start: 20110504, end: 20110520

REACTIONS (1)
  - INTERNATIONAL NORMALISED RATIO DECREASED [None]
